FAERS Safety Report 5473804-4 (Version None)
Quarter: 2007Q4

REPORT INFORMATION
  Report Type: 
  Country: None (occurrence: None)
  Receive Date: 20071001
  Receipt Date: 20070919
  Transmission Date: 20080405
  Serious: Yes (Other)
  Sender: FDA-Public Use
  Company Number: GB-PFIZER INC-2007070720

PATIENT
  Sex: Male

DRUGS (7)
  1. LYRICA [Suspect]
     Indication: NEURALGIA
     Route: 048
  2. LYRICA [Suspect]
     Indication: LUMBAR RADICULOPATHY
  3. LYRICA [Suspect]
     Indication: PAIN
  4. WARFARIN SODIUM [Concomitant]
  5. PARACETAMOL [Concomitant]
  6. CO-CODAMOL [Concomitant]
  7. ETORICOXIB [Concomitant]

REACTIONS (10)
  - ANXIETY [None]
  - AUTONOMIC NERVOUS SYSTEM IMBALANCE [None]
  - BREAKTHROUGH PAIN [None]
  - CHEST DISCOMFORT [None]
  - DRUG WITHDRAWAL SYNDROME [None]
  - DYSPNOEA [None]
  - EUPHORIC MOOD [None]
  - FATIGUE [None]
  - INSOMNIA [None]
  - WEIGHT INCREASED [None]
